FAERS Safety Report 7556772-0 (Version None)
Quarter: 2011Q2

REPORT INFORMATION
  Report Type: 
  Country: None (occurrence: None)
  Receive Date: 20110620
  Receipt Date: 20110613
  Transmission Date: 20111010
  Serious: Yes (Disabling, Other)
  Sender: FDA-Public Use
  Company Number: AR-ABBOTT-11P-007-0732033-00

PATIENT
  Sex: Female

DRUGS (3)
  1. DICLOFENAC SODIUM [Concomitant]
     Indication: PRODUCT USED FOR UNKNOWN INDICATION
     Route: 048
  2. CORTICOSTEROIDS [Concomitant]
     Indication: PRODUCT USED FOR UNKNOWN INDICATION
     Route: 065
     Dates: start: 20110608
  3. HUMIRA [Suspect]
     Indication: RHEUMATOID ARTHRITIS
     Route: 058
     Dates: start: 20110101, end: 20110401

REACTIONS (7)
  - NEOPLASM MALIGNANT [None]
  - ABASIA [None]
  - PAIN [None]
  - SYNOVITIS [None]
  - LUNG DISORDER [None]
  - TUBERCULOSIS [None]
  - ASTHENIA [None]
